FAERS Safety Report 19801166 (Version 1)
Quarter: 2021Q3

REPORT INFORMATION
  Report Type: Spontaneous
  Country: US (occurrence: US)
  Receive Date: 20210908
  Receipt Date: 20210908
  Transmission Date: 20211014
  Serious: Yes (Other)
  Sender: FDA-Public Use
  Company Number: US-SA-2021SA293443

PATIENT
  Age: 81 Year
  Sex: Female

DRUGS (1)
  1. LANTUS [Suspect]
     Active Substance: INSULIN GLARGINE
     Indication: TYPE 2 DIABETES MELLITUS
     Dosage: UNK
     Route: 065

REACTIONS (5)
  - Blood glucose abnormal [Unknown]
  - Circumstance or information capable of leading to medication error [Unknown]
  - Cerebrovascular accident [Unknown]
  - Paralysis [Unknown]
  - Product storage error [Unknown]

NARRATIVE: CASE EVENT DATE: 20210902
